FAERS Safety Report 8504370-4 (Version None)
Quarter: 2012Q3

REPORT INFORMATION
  Report Type: 
  Country: None (occurrence: None)
  Receive Date: 20120711
  Receipt Date: 20120710
  Transmission Date: 20120928
  Serious: Yes (Other)
  Sender: FDA-Public Use
  Company Number: CHPA2012US011571

PATIENT
  Sex: Female

DRUGS (2)
  1. DRUG THERAPY NOS [Concomitant]
     Indication: PROPHYLAXIS
     Dosage: UNK
     Dates: start: 20120201
  2. PREVACID 24 HR [Suspect]
     Indication: GASTROOESOPHAGEAL REFLUX DISEASE
     Dosage: 15-30 MG, QD
     Route: 048
     Dates: end: 20120501

REACTIONS (5)
  - DIARRHOEA [None]
  - OFF LABEL USE [None]
  - INCORRECT DRUG ADMINISTRATION DURATION [None]
  - OVERDOSE [None]
  - PAIN [None]
